FAERS Safety Report 9338374 (Version 3)
Quarter: 2013Q3

REPORT INFORMATION
  Report Type: Spontaneous
  Country: US (occurrence: US)
  Receive Date: 20130610
  Receipt Date: 20130909
  Transmission Date: 20140515
  Serious: Yes (Other)
  Sender: FDA-Public Use
  Company Number: US-PFIZER INC-2013171213

PATIENT
  Age: 45 Year
  Sex: Male
  Weight: 99.77 kg

DRUGS (6)
  1. SUTENT [Suspect]
     Indication: NEOPLASM MALIGNANT
     Dosage: 50 MG, 1X/DAY
     Dates: start: 20121228
  2. SUTENT [Suspect]
     Dosage: UNK, (CURRENTLY ON THIRD WEEK OF CYCLE)
     Dates: end: 201308
  3. PRILOSEC [Concomitant]
     Dosage: UNK
  4. IMODIUM A-D [Concomitant]
     Dosage: UNK
  5. LOSARTAN [Concomitant]
     Indication: HYPERTENSION
     Dosage: UNK
  6. AMLODIPINE [Concomitant]
     Dosage: UNK

REACTIONS (11)
  - Blood pressure increased [Unknown]
  - Fatigue [Unknown]
  - Dysgeusia [Unknown]
  - Diarrhoea [Unknown]
  - Hair colour changes [Unknown]
  - Yellow skin [Unknown]
  - Heart rate decreased [Unknown]
  - Headache [Unknown]
  - Blood creatinine increased [Unknown]
  - Disease progression [Unknown]
  - Neoplasm malignant [Unknown]
